FAERS Safety Report 7264787-5 (Version None)
Quarter: 2011Q1

REPORT INFORMATION
  Report Type: 
  Country: None (occurrence: None)
  Receive Date: 20110131
  Receipt Date: 20110125
  Transmission Date: 20110831
  Serious: Yes (Other)
  Sender: FDA-Public Use
  Company Number: CA-US-EMD SERONO, INC.-230213J08CAN

PATIENT
  Sex: Male

DRUGS (7)
  1. NAPROXEN [Concomitant]
  2. AMITRIPTYLINE HCL [Concomitant]
  3. ACITOMENOPHEN [ACETAMINOPHEN] [Concomitant]
  4. NEURONTIN [Concomitant]
  5. GABATIN [Concomitant]
  6. REBIF [Suspect]
     Indication: RELAPSING-REMITTING MULTIPLE SCLEROSIS
     Dates: start: 20000620
  7. MANY DRUGS (PATIENT DID NOT WANT TO PROVIDE NAMES) [Concomitant]

REACTIONS (21)
  - PARAESTHESIA [None]
  - HEMICEPHALALGIA [None]
  - ASTHENIA [None]
  - DEPRESSED MOOD [None]
  - SENSATION OF PRESSURE [None]
  - BLADDER DISORDER [None]
  - AMNESIA [None]
  - INJECTION SITE CYST [None]
  - AGGRESSION [None]
  - STRESS [None]
  - HYPOAESTHESIA [None]
  - BURNING SENSATION [None]
  - FALL [None]
  - PAIN [None]
  - HEADACHE [None]
  - LIMB DISCOMFORT [None]
  - PAIN IN EXTREMITY [None]
  - DIZZINESS [None]
  - ERYTHEMA [None]
  - SOMNOLENCE [None]
  - FATIGUE [None]
